FAERS Safety Report 15580715 (Version 1)
Quarter: 2018Q4

REPORT INFORMATION
  Report Type: Spontaneous
  Country: US (occurrence: US)
  Receive Date: 20181103
  Receipt Date: 20181103
  Transmission Date: 20190205
  Serious: Yes (Disabling, Other)
  Sender: FDA-Public Use
  Company Number: None

PATIENT
  Age: 30 Year
  Sex: Female
  Weight: 103.5 kg

DRUGS (5)
  1. METOTOPROL [Concomitant]
  2. ZYRTEC [Concomitant]
     Active Substance: CETIRIZINE HYDROCHLORIDE
  3. MUCINEX [Concomitant]
     Active Substance: GUAIFENESIN
  4. MONISTAT 1 COMBINATION PACK [Suspect]
     Active Substance: MICONAZOLE NITRATE
     Indication: FUNGAL INFECTION
     Dosage: ?          OTHER STRENGTH:INSERT IS 1200 MG;QUANTITY:1 SUPPOSITORY(IES);OTHER FREQUENCY:ONE TIME;?
     Route: 067
     Dates: start: 20181102, end: 20181102
  5. NITROFURANTOIN MONOHYDRATE MACROCRYSTALS [Concomitant]
     Active Substance: NITROFURANTOIN\NITROFURANTOIN MONOHYDRATE

REACTIONS (7)
  - Vulvovaginal burning sensation [None]
  - Vulvovaginal pain [None]
  - Vulvovaginal inflammation [None]
  - Application site burn [None]
  - Application site swelling [None]
  - Vulvovaginal swelling [None]
  - Application site pain [None]

NARRATIVE: CASE EVENT DATE: 20181102
